FAERS Safety Report 16858212 (Version 7)
Quarter: 2023Q2

REPORT INFORMATION
  Report Type: Spontaneous
  Country: US (occurrence: US)
  Receive Date: 20190926
  Receipt Date: 20230516
  Transmission Date: 20230721
  Serious: Yes (Death, Hospitalization, Other)
  Sender: FDA-Public Use
  Company Number: US-GILEAD-2019-0429856

PATIENT
  Age: 38 Year
  Sex: Male

DRUGS (18)
  1. ATRIPLA [Suspect]
     Active Substance: EFAVIRENZ\EMTRICITABINE\TENOFOVIR DISOPROXIL FUMARATE
     Indication: HIV infection
     Dosage: UNK
     Route: 048
     Dates: start: 2008, end: 20180322
  2. ATRIPLA [Suspect]
     Active Substance: EFAVIRENZ\EMTRICITABINE\TENOFOVIR DISOPROXIL FUMARATE
     Dosage: UNK
     Route: 048
     Dates: start: 2006, end: 201801
  3. APTIVUS [Concomitant]
     Active Substance: TIPRANAVIR
  4. CARVEDILOL [Concomitant]
     Active Substance: CARVEDILOL
  5. BASAGLAR [Concomitant]
     Active Substance: INSULIN GLARGINE
  6. FENTANYL [Concomitant]
     Active Substance: FENTANYL
  7. HUMALOG [Concomitant]
     Active Substance: INSULIN LISPRO
  8. FENOFIBRATE [Concomitant]
     Active Substance: FENOFIBRATE
  9. FLUCELVAX QUAD [Concomitant]
  10. CLONIDINE [Concomitant]
     Active Substance: CLONIDINE
  11. ATORVASTATIN [Concomitant]
     Active Substance: ATORVASTATIN
  12. GLUCAGON [Concomitant]
     Active Substance: GLUCAGON
  13. LISINOPRIL [Concomitant]
     Active Substance: LISINOPRIL
  14. LYRICA [Concomitant]
     Active Substance: PREGABALIN
  15. METOCLOPRAMIDE [Concomitant]
     Active Substance: METOCLOPRAMIDE
  16. ONDANSETRON [Concomitant]
     Active Substance: ONDANSETRON
  17. PAROXETINE [Concomitant]
     Active Substance: PAROXETINE
  18. ACETAMINOPHEN\HYDROCODONE [Concomitant]
     Active Substance: ACETAMINOPHEN\HYDROCODONE

REACTIONS (9)
  - Acute kidney injury [Fatal]
  - End stage renal disease [Fatal]
  - Encephalopathy [Unknown]
  - Injury [Not Recovered/Not Resolved]
  - Pain [Not Recovered/Not Resolved]
  - Emotional distress [Not Recovered/Not Resolved]
  - Anxiety [Not Recovered/Not Resolved]
  - Anhedonia [Not Recovered/Not Resolved]
  - Economic problem [Unknown]

NARRATIVE: CASE EVENT DATE: 20161101
